FAERS Safety Report 5801207-9 (Version None)
Quarter: 2008Q3

REPORT INFORMATION
  Report Type: 
  Country: None (occurrence: None)
  Receive Date: 20080707
  Receipt Date: 20080625
  Transmission Date: 20090109
  Serious: Yes (Death)
  Sender: FDA-Public Use
  Company Number: JACAN16134

PATIENT
  Age: 52 Year
  Sex: Male
  Weight: 104.33 kg

DRUGS (5)
  1. DURAGESIC-100 [Suspect]
     Indication: BACK PAIN
     Route: 062
     Dates: start: 19961023, end: 19961024
  2. VALIUM [Interacting]
     Indication: DRUG USE FOR UNKNOWN INDICATION
     Route: 048
     Dates: start: 19961023, end: 19961024
  3. MEPERIDINE HCL [Interacting]
     Indication: DRUG USE FOR UNKNOWN INDICATION
     Route: 030
     Dates: start: 19961023, end: 19961024
  4. GRAVOL TAB [Concomitant]
     Route: 030
     Dates: start: 19961023, end: 19961024
  5. INDOCIN [Concomitant]
     Route: 054
     Dates: start: 19961023, end: 19961024

REACTIONS (4)
  - DRUG ADMINISTRATION ERROR [None]
  - DRUG INTERACTION [None]
  - DRUG LEVEL INCREASED [None]
  - SUDDEN DEATH [None]
